FAERS Safety Report 17999441 (Version 1)
Quarter: 2020Q3

REPORT INFORMATION
  Report Type: Spontaneous
  Country: US (occurrence: US)
  Receive Date: 20200708
  Receipt Date: 20200708
  Transmission Date: 20201103
  Serious: No
  Sender: FDA-Public Use
  Company Number: None

PATIENT
  Age: 85 Year
  Sex: Male

DRUGS (6)
  1. TAMSULOSIN 0.4MG CAPSULES [Concomitant]
     Active Substance: TAMSULOSIN
     Indication: BENIGN PROSTATIC HYPERPLASIA
     Route: 048
     Dates: start: 20200206
  2. ACYCLOVIR 400MG TABLETS [Concomitant]
     Indication: PROPHYLAXIS
     Route: 048
     Dates: start: 20200206
  3. TRETINOIN 10 MG CAP [Suspect]
     Active Substance: TRETINOIN
     Indication: LEUKAEMIA
     Dosage: ?          OTHER FREQUENCY:QAM, 40MG QPM;?
     Route: 048
     Dates: start: 202004
  4. ROSUVASTATIN 10MG TABLETS [Concomitant]
     Active Substance: ROSUVASTATIN
     Route: 048
     Dates: start: 20200206
  5. TRETINOIN 10MG CAPSULES [Concomitant]
     Indication: LEUKAEMIA
     Dosage: ?          OTHER FREQUENCY:QMOR THEN 4 Q BED;?
     Route: 048
  6. ELIQUIS [Concomitant]
     Active Substance: APIXABAN
     Route: 048
     Dates: start: 20200206

REACTIONS (1)
  - Anxiety [None]

NARRATIVE: CASE EVENT DATE: 202004
